FAERS Safety Report 4924584-X (Version None)
Quarter: 2006Q1

REPORT INFORMATION
  Report Type: 
  Country: None (occurrence: None)
  Receive Date: 20060222
  Receipt Date: 20060206
  Transmission Date: 20060701
  Serious: Yes (Death)
  Sender: FDA-Public Use
  Company Number: 2006000287

PATIENT
  Age: 71 Year
  Sex: Male

DRUGS (5)
  1. TARCEVA [Suspect]
     Indication: PANCREATIC CARCINOMA
     Dosage: 100 MG (QD), ORAL
     Route: 048
     Dates: start: 20060105, end: 20060107
  2. OXYCONTIN [Suspect]
     Dates: start: 20060105, end: 20060107
  3. GEMCITABINE (GEMCITABINE) (INJECTION) [Suspect]
     Indication: PANCREATIC CARCINOMA
     Dosage: 1600 MG, INTRAVENOUS
     Route: 042
     Dates: start: 20060105
  4. OXYCODONE HCL [Suspect]
     Dosage: ORAL
     Route: 048
     Dates: start: 20060105
  5. WARFARIN (WARFARIN) (TABLET) [Suspect]
     Dosage: SEE IMAGE, ORAL
     Route: 048
     Dates: start: 20060105, end: 20060106

REACTIONS (1)
  - SUDDEN DEATH [None]
